FAERS Safety Report 7570964-6 (Version None)
Quarter: 2011Q2

REPORT INFORMATION
  Report Type: 
  Country: None (occurrence: None)
  Receive Date: 20110622
  Receipt Date: 20110622
  Transmission Date: 20111010
  Serious: Yes (Other)
  Sender: FDA-Public Use
  Company Number: None

PATIENT
  Sex: Female
  Weight: 73.9363 kg

DRUGS (2)
  1. OMNARIS [Suspect]
     Indication: SINUSITIS
     Dosage: 1 A DAY
     Dates: start: 20110527
  2. OMNARIS [Suspect]
     Indication: SINUSITIS
     Dosage: 1 A DAY
     Dates: start: 20110526

REACTIONS (3)
  - HYPERHIDROSIS [None]
  - DYSSTASIA [None]
  - DIZZINESS [None]
